FAERS Safety Report 13472421 (Version 1)
Quarter: 2017Q2

REPORT INFORMATION
  Report Type: Spontaneous
  Country: US (occurrence: US)
  Receive Date: 20170422
  Receipt Date: 20170422
  Transmission Date: 20170830
  Serious: No
  Sender: FDA-Public Use
  Company Number: None

PATIENT
  Age: 43 Year
  Sex: Female
  Weight: 4.5 kg

DRUGS (1)
  1. DULOXETINE. [Suspect]
     Active Substance: DULOXETINE
     Indication: DRUG THERAPY
     Dosage: ?          QUANTITY:60 CAPSULE(S);?
     Dates: start: 20170201, end: 20170415

REACTIONS (3)
  - Incorrect dose administered [None]
  - Drug dispensing error [None]
  - Overdose [None]

NARRATIVE: CASE EVENT DATE: 20170420
